FAERS Safety Report 17250379 (Version 1)
Quarter: 2020Q1

REPORT INFORMATION
  Report Type: Spontaneous
  Country: SE (occurrence: SE)
  Receive Date: 20200109
  Receipt Date: 20200109
  Transmission Date: 20200409
  Serious: Yes (Other)
  Sender: FDA-Public Use
  Company Number: SE-AUROBINDO-AUR-APL-2020-001259

PATIENT
  Age: 49 Year
  Sex: Female
  Weight: 49 kg

DRUGS (4)
  1. NAPROXEN TABLET [Suspect]
     Active Substance: NAPROXEN
     Indication: PERIARTHRITIS
     Dosage: 500 MILLIGRAM, ONCE A DAY (1 TABLETT PER DAG I 14 DAGAR)
     Route: 065
  2. OMEPRAZOLE. [Concomitant]
     Active Substance: OMEPRAZOLE
     Indication: PRODUCT USED FOR UNKNOWN INDICATION
     Dosage: UNK, SKYDD MOT MAGPROBLEM VID INTAG AV NAPROXEN.
     Route: 065
     Dates: start: 20191208
  3. LEVAXIN [Concomitant]
     Active Substance: LEVOTHYROXINE SODIUM
     Indication: PRODUCT USED FOR UNKNOWN INDICATION
     Dosage: UNK
     Route: 065
  4. NAPROXEN TABLET [Suspect]
     Active Substance: NAPROXEN
     Dosage: 250 MILLIGRAM, ONCE A DAY (1 TABLETT/DAG I 10 DAGAR)
     Route: 065
     Dates: start: 201909

REACTIONS (3)
  - Respiratory tract infection [Not Recovered/Not Resolved]
  - Pruritus [Not Recovered/Not Resolved]
  - Rash [Not Recovered/Not Resolved]

NARRATIVE: CASE EVENT DATE: 201910
